FAERS Safety Report 25142714 (Version 1)
Quarter: 2025Q1

REPORT INFORMATION
  Report Type: Spontaneous
  Country: JP (occurrence: JP)
  Receive Date: 20250331
  Receipt Date: 20250331
  Transmission Date: 20250408
  Serious: Yes (Other)
  Sender: ORGANON
  Company Number: JP-ORGANON-O2503JPN002807

PATIENT
  Sex: Male

DRUGS (1)
  1. DESLORATADINE [Suspect]
     Active Substance: DESLORATADINE
     Route: 048
     Dates: start: 20230526

REACTIONS (1)
  - Urinary retention [Unknown]

NARRATIVE: CASE EVENT DATE: 20230501
